FAERS Safety Report 6912147-6 (Version None)
Quarter: 2010Q3

REPORT INFORMATION
  Report Type: 
  Country: None (occurrence: None)
  Receive Date: 20100806
  Receipt Date: 20071211
  Transmission Date: 20110219
  Serious: Yes (Other)
  Sender: FDA-Public Use
  Company Number: US-PFIZER INC-2007103956

PATIENT
  Age: 18 Year
  Sex: Male
  Weight: 52 kg

DRUGS (21)
  1. VFEND [Suspect]
     Indication: LIVER TRANSPLANT
     Dates: start: 20071016
  2. PREDNISONE [Concomitant]
  3. NORVASC [Concomitant]
  4. PROGRAF [Concomitant]
  5. SINGULAIR ^DIECKMANN^ [Concomitant]
  6. ZYRTEC [Concomitant]
  7. COLISTIN [Concomitant]
  8. ALBUTEROL [Concomitant]
  9. PREVACID [Concomitant]
  10. MAGNESIUM GLUCONATE [Concomitant]
  11. OS-CAL [Concomitant]
  12. NIFEREX [Concomitant]
  13. ADVAIR DISKUS 100/50 [Concomitant]
  14. IMODIUM [Concomitant]
  15. CREON [Concomitant]
  16. BACTRIM [Concomitant]
  17. ASPIRIN [Concomitant]
  18. FOLIC ACID [Concomitant]
  19. VITAMIN B6 [Concomitant]
  20. ACTONEL [Concomitant]
  21. MYCOSTATIN [Concomitant]

REACTIONS (4)
  - ALANINE AMINOTRANSFERASE INCREASED [None]
  - ASPARTATE AMINOTRANSFERASE INCREASED [None]
  - BLOOD ALKALINE PHOSPHATASE INCREASED [None]
  - GAMMA-GLUTAMYLTRANSFERASE INCREASED [None]
